FAERS Safety Report 5183644-1 (Version None)
Quarter: 2006Q4

REPORT INFORMATION
  Report Type: 
  Country: None (occurrence: None)
  Receive Date: 20061220
  Receipt Date: 20060126
  Transmission Date: 20070319
  Serious: No
  Sender: FDA-Public Use
  Company Number: US-GLAXOSMITHKLINE-A0590997A

PATIENT
  Age: 36 Year
  Sex: Female

DRUGS (2)
  1. NICODERM [Suspect]
     Indication: SMOKING CESSATION THERAPY
  2. MEMBERS MARK NTS ORIGINAL, 21MG [Suspect]
     Indication: SMOKING CESSATION THERAPY
     Dates: start: 20060123

REACTIONS (5)
  - APPLICATION SITE ERYTHEMA [None]
  - COLD SWEAT [None]
  - HYPERVENTILATION [None]
  - RETCHING [None]
  - VOMITING [None]
